FAERS Safety Report 24079420 (Version 2)
Quarter: 2025Q1

REPORT INFORMATION
  Report Type: Report from Study
  Country: CA (occurrence: CA)
  Receive Date: 20240711
  Receipt Date: 20250205
  Transmission Date: 20250409
  Serious: Yes (Other)
  Sender: OTSUKA
  Company Number: CA-OTSUKA-2023_001539

PATIENT
  Sex: Female

DRUGS (1)
  1. ARIPIPRAZOLE [Suspect]
     Active Substance: ARIPIPRAZOLE
     Indication: Product used for unknown indication
     Route: 030

REACTIONS (5)
  - Detoxification [Recovering/Resolving]
  - Substance use [Recovering/Resolving]
  - Inappropriate schedule of product administration [Unknown]
  - Poor personal hygiene [Not Recovered/Not Resolved]
  - Product dose omission issue [Unknown]
